FAERS Safety Report 12529865 (Version 1)
Quarter: 2016Q3

REPORT INFORMATION
  Report Type: Spontaneous
  Country: US (occurrence: US)
  Receive Date: 20160706
  Receipt Date: 20160706
  Transmission Date: 20161109
  Serious: Yes (Other)
  Sender: FDA-Public Use
  Company Number: US-ABBVIE-16K-163-1663301-00

PATIENT
  Age: 56 Year

DRUGS (11)
  1. REMICADE [Suspect]
     Active Substance: INFLIXIMAB
     Indication: CROHN^S DISEASE
     Route: 065
  2. REMICADE [Suspect]
     Active Substance: INFLIXIMAB
     Indication: COLITIS
  3. ORENCIA [Concomitant]
     Active Substance: ABATACEPT
     Indication: COLITIS
  4. PREDNISONE. [Concomitant]
     Active Substance: PREDNISONE
     Indication: CROHN^S DISEASE
  5. HUMIRA [Suspect]
     Active Substance: ADALIMUMAB
     Indication: CROHN^S DISEASE
     Route: 058
  6. IMURAN [Suspect]
     Active Substance: AZATHIOPRINE
     Indication: COLITIS
  7. VEDOLIZUMAB [Concomitant]
     Active Substance: VEDOLIZUMAB
     Indication: COLITIS
  8. HUMIRA [Suspect]
     Active Substance: ADALIMUMAB
     Indication: COLITIS
  9. PREDNISONE. [Concomitant]
     Active Substance: PREDNISONE
     Indication: COLITIS
  10. VEDOLIZUMAB [Concomitant]
     Active Substance: VEDOLIZUMAB
     Indication: CROHN^S DISEASE
  11. IMURAN [Suspect]
     Active Substance: AZATHIOPRINE
     Indication: CROHN^S DISEASE
     Route: 065

REACTIONS (9)
  - Drug specific antibody present [Unknown]
  - Stomal hernia [Recovering/Resolving]
  - Pyoderma gangrenosum [Unknown]
  - Post procedural complication [Unknown]
  - Colostomy [Unknown]
  - Gastrointestinal haemorrhage [Unknown]
  - Procedural complication [Unknown]
  - Wound dehiscence [Unknown]
  - Nausea [Unknown]
